FAERS Safety Report 22952239 (Version 2)
Quarter: 2023Q4

REPORT INFORMATION
  Report Type: Report from Study
  Country: MX (occurrence: MX)
  Receive Date: 20230918
  Receipt Date: 20231021
  Transmission Date: 20240110
  Serious: Yes (Death, Hospitalization, Other)
  Sender: FDA-Public Use
  Company Number: MX-002147023-NVSC2023MX199767

PATIENT
  Age: 54 Year
  Sex: Male
  Weight: 60 kg

DRUGS (2)
  1. VOTRIENT [Suspect]
     Active Substance: PAZOPANIB HYDROCHLORIDE
     Indication: Renal cancer
     Dosage: 4 DOSAGE FORM, QD (200 MG)
     Route: 048
     Dates: start: 20230609, end: 202308
  2. SUNITINIB [Suspect]
     Active Substance: SUNITINIB
     Indication: Renal cancer
     Dosage: 2 DOSAGE FORM, BID
     Route: 048
     Dates: start: 20230713, end: 202308

REACTIONS (14)
  - Neoplasm malignant [Fatal]
  - Mobility decreased [Not Recovered/Not Resolved]
  - Dysstasia [Unknown]
  - Central nervous system neoplasm [Not Recovered/Not Resolved]
  - Renal cancer [Not Recovered/Not Resolved]
  - Malignant neoplasm progression [Not Recovered/Not Resolved]
  - Metastases to lung [Not Recovered/Not Resolved]
  - Metastases to liver [Unknown]
  - Metastases to the mediastinum [Unknown]
  - Throat cancer [Unknown]
  - Product availability issue [Unknown]
  - Dysphonia [Not Recovered/Not Resolved]
  - Weight decreased [Unknown]
  - Drug ineffective [Unknown]

NARRATIVE: CASE EVENT DATE: 20230707
